FAERS Safety Report 15985281 (Version 7)
Quarter: 2019Q2

REPORT INFORMATION
  Report Type: Spontaneous
  Country: TW (occurrence: TW)
  Receive Date: 20190220
  Receipt Date: 20190426
  Transmission Date: 20190711
  Serious: Yes (Death, Hospitalization, Other)
  Sender: FDA-Public Use
  Company Number: TW-GILEAD-2019-0391668

PATIENT
  Age: 38 Year
  Sex: Male

DRUGS (2)
  1. COMPLERA [Suspect]
     Active Substance: EMTRICITABINE\RILPIVIRINE HYDROCHLORIDE\TENOFOVIR DISOPROXIL FUMARATE
     Indication: HIV INFECTION
     Route: 065
  2. HARVONI [Suspect]
     Active Substance: LEDIPASVIR\SOFOSBUVIR
     Indication: HEPATITIS C
     Dosage: UNK
     Route: 065
     Dates: start: 20190121, end: 20190202

REACTIONS (23)
  - Shigella infection [Fatal]
  - Hyponatraemia [Unknown]
  - Shock [Unknown]
  - Hyperbilirubinaemia [Unknown]
  - Asthenia [Unknown]
  - Ill-defined disorder [Unknown]
  - Abdominal pain [Unknown]
  - Abdominal discomfort [Unknown]
  - Cyanosis [Unknown]
  - Acute kidney injury [Fatal]
  - Thrombocytopenia [Unknown]
  - Gastrointestinal hypomotility [Unknown]
  - Bradycardia [Unknown]
  - Jaundice [Fatal]
  - Sepsis [Fatal]
  - Dyspnoea [Unknown]
  - Varices oesophageal [Unknown]
  - Melaena [Unknown]
  - Abdominal distension [Unknown]
  - Renal failure [Unknown]
  - Diarrhoea [Unknown]
  - Somnolence [Unknown]
  - Haematochezia [Unknown]

NARRATIVE: CASE EVENT DATE: 20190208
